FAERS Safety Report 7263267-0 (Version None)
Quarter: 2011Q1

REPORT INFORMATION
  Report Type: 
  Country: None (occurrence: None)
  Receive Date: 20110130
  Receipt Date: 20100920
  Transmission Date: 20110831
  Serious: No
  Sender: FDA-Public Use
  Company Number: US-ABBOTT-10P-163-0673115-00

PATIENT
  Sex: Male
  Weight: 81.72 kg

DRUGS (3)
  1. METHOTREXATE [Concomitant]
     Indication: RHEUMATOID ARTHRITIS
  2. HUMIRA [Suspect]
     Indication: RHEUMATOID ARTHRITIS
     Dates: start: 20080101, end: 20100301
  3. HUMIRA [Suspect]
     Dates: start: 20100301

REACTIONS (3)
  - ARTHROPOD BITE [None]
  - DRUG DOSE OMISSION [None]
  - INFECTION [None]
